FAERS Safety Report 10075066 (Version 1)
Quarter: 2014Q2

REPORT INFORMATION
  Report Type: Spontaneous
  Country: US (occurrence: US)
  Receive Date: 20140414
  Receipt Date: 20140414
  Transmission Date: 20141212
  Serious: No
  Sender: FDA-Public Use
  Company Number: US-BIOGENIDEC-2014BI029136

PATIENT
  Sex: Female

DRUGS (8)
  1. TECFIDERA [Suspect]
     Indication: MULTIPLE SCLEROSIS
     Route: 048
     Dates: start: 20130526, end: 20130601
  2. TECFIDERA [Suspect]
     Indication: MULTIPLE SCLEROSIS
     Route: 048
     Dates: start: 20130602
  3. CYMBALTA [Concomitant]
  4. ATORVASTATIN [Concomitant]
  5. METOLAZONE [Concomitant]
  6. DIAZEPAM [Concomitant]
  7. POTASSIUM [Concomitant]
  8. MAGNESIUM [Concomitant]

REACTIONS (2)
  - Paraesthesia [Unknown]
  - Feeling hot [Unknown]
